FAERS Safety Report 16900044 (Version 1)
Quarter: 2019Q4

REPORT INFORMATION
  Report Type: Spontaneous
  Country: US (occurrence: US)
  Receive Date: 20191006
  Receipt Date: 20191006
  Transmission Date: 20200122
  Serious: Yes (Other)
  Sender: FDA-Public Use
  Company Number: None

PATIENT
  Age: 43 Year
  Sex: Female
  Weight: 59.85 kg

DRUGS (2)
  1. OFFICIAL HCG DIET STORE [DIETARY SUPPLEMENT\HOMEOPATHICS] [Suspect]
     Active Substance: DIETARY SUPPLEMENT\HOMEOPATHICS
     Indication: WEIGHT DECREASED
     Dosage: ?          QUANTITY:10 DROP(S);?
     Route: 060
     Dates: start: 20190920, end: 20190921
  2. OFFICIAL HCG DIET STORE [DIETARY SUPPLEMENT\HOMEOPATHICS] [Suspect]
     Active Substance: DIETARY SUPPLEMENT\HOMEOPATHICS
     Indication: BLOOD GLUCOSE INCREASED
     Dosage: ?          QUANTITY:10 DROP(S);?
     Route: 060
     Dates: start: 20190920, end: 20190921

REACTIONS (3)
  - Diarrhoea [None]
  - Vomiting [None]
  - Nausea [None]

NARRATIVE: CASE EVENT DATE: 20190920
